FAERS Safety Report 11085454 (Version 2)
Quarter: 2015Q2

REPORT INFORMATION
  Report Type: Spontaneous
  Country: US (occurrence: US)
  Receive Date: 20150503
  Receipt Date: 20150525
  Transmission Date: 20150821
  Serious: No
  Sender: FDA-Public Use
  Company Number: US-JNJFOC-20121105438

PATIENT
  Sex: Female
  Weight: 79.38 kg

DRUGS (5)
  1. VALTREX [Concomitant]
     Active Substance: VALACYCLOVIR HYDROCHLORIDE
     Indication: ANTIVIRAL PROPHYLAXIS
     Route: 048
  2. CALCIUM CITRATE [Concomitant]
     Active Substance: CALCIUM CITRATE
     Route: 065
  3. VITAMIN D3 [Concomitant]
     Active Substance: CHOLECALCIFEROL
     Route: 065
  4. MULTI-VIT [Concomitant]
     Active Substance: VITAMINS
     Route: 065
  5. ORTHO EVRA [Suspect]
     Active Substance: ETHINYL ESTRADIOL\NORELGESTROMIN
     Indication: HORMONE REPLACEMENT THERAPY
     Dosage: EVERY 4 TO 5 DAYS IN AUG-2011 OR SEP-2011
     Route: 062
     Dates: start: 201110, end: 201207

REACTIONS (5)
  - Wrong technique in drug usage process [Not Recovered/Not Resolved]
  - Product quality issue [Unknown]
  - Drug prescribing error [Not Recovered/Not Resolved]
  - Application site rash [Recovered/Resolved]
  - Application site perspiration [Recovered/Resolved]

NARRATIVE: CASE EVENT DATE: 2011
